FAERS Safety Report 10159744 (Version 1)
Quarter: 2014Q2

REPORT INFORMATION
  Report Type: Spontaneous
  Country: US (occurrence: None)
  Receive Date: 20140507
  Receipt Date: 20140507
  Transmission Date: 20141212
  Serious: Yes (Death, Hospitalization)
  Sender: FDA-Public Use
  Company Number: None

PATIENT
  Age: 58 Year
  Sex: Male
  Weight: 73.48 kg

DRUGS (9)
  1. LAMOTRIGINE [Suspect]
     Indication: CONVULSION
     Dosage: TAKE 2 TABLETS TWICE A DAY.BY MOUTH.
     Route: 048
     Dates: start: 20131206, end: 20131229
  2. VITAMIN D [Concomitant]
  3. FISH OIL [Concomitant]
  4. BENAZEPRIL HCL [Concomitant]
  5. METFORMIN [Concomitant]
  6. LEVOTHYROXINE [Concomitant]
  7. PHENYTOIN [Concomitant]
  8. AMLODIPINE BESYLATE [Concomitant]
  9. GLIPIZIDE ER [Concomitant]

REACTIONS (3)
  - Renal failure [None]
  - Groin pain [None]
  - Abdominal pain upper [None]
